FAERS Safety Report 14539445 (Version 1)
Quarter: 2018Q1

REPORT INFORMATION
  Report Type: Spontaneous
  Country: US (occurrence: US)
  Receive Date: 20180215
  Receipt Date: 20180215
  Transmission Date: 20180509
  Serious: Yes (Hospitalization)
  Sender: FDA-Public Use
  Company Number: None

PATIENT
  Age: 60 Year
  Sex: Male

DRUGS (14)
  1. ULORIC [Concomitant]
     Active Substance: FEBUXOSTAT
  2. TAMSULOSIN [Concomitant]
     Active Substance: TAMSULOSIN
  3. LEVEMIR [Concomitant]
     Active Substance: INSULIN DETEMIR
  4. DOXYCYCLINE. [Concomitant]
     Active Substance: DOXYCYCLINE
  5. OXYCODONE [Concomitant]
     Active Substance: OXYCODONE
  6. MYCOPHENOLIC [Suspect]
     Active Substance: MYCOPHENOLIC ACID
     Indication: RENAL TRANSPLANT
     Route: 048
     Dates: start: 20161112
  7. NOVOLOG [Concomitant]
     Active Substance: INSULIN ASPART
  8. AMIODARONE [Concomitant]
     Active Substance: AMIODARONE
  9. AMOX/ K CLAV [Concomitant]
  10. PANTOPRAZOLE [Concomitant]
     Active Substance: PANTOPRAZOLE
  11. RAMPIPRIL [Concomitant]
  12. PRAVASTATIN. [Concomitant]
     Active Substance: PRAVASTATIN
  13. FUROSEMIDE. [Concomitant]
     Active Substance: FUROSEMIDE
  14. SCOPOLAMINE [Concomitant]
     Active Substance: SCOPOLAMINE

REACTIONS (1)
  - Cardiac operation [None]

NARRATIVE: CASE EVENT DATE: 20180215
